FAERS Safety Report 8525428 (Version 2)
Quarter: 2013Q4

REPORT INFORMATION
  Report Type: Spontaneous
  Country: US (occurrence: US)
  Receive Date: 20120423
  Receipt Date: 20131118
  Transmission Date: 20140711
  Serious: No
  Sender: FDA-Public Use
  Company Number: US-JNJFOC-20120404064

PATIENT
  Sex: Female
  Weight: 63.5 kg

DRUGS (11)
  1. DURAGESIC [Suspect]
     Indication: ARTHROPATHY
     Route: 062
  2. DURAGESIC [Suspect]
     Indication: BACK DISORDER
     Route: 062
  3. DURAGESIC [Suspect]
     Indication: INTERVERTEBRAL DISC DEGENERATION
     Route: 062
  4. DURAGESIC [Suspect]
     Indication: RHEUMATOID ARTHRITIS
     Route: 062
  5. DURAGESIC [Suspect]
     Indication: OSTEOPOROSIS
     Route: 062
  6. GENERIC FENTANYL [Suspect]
     Indication: ARTHROPATHY
     Route: 065
  7. GENERIC FENTANYL [Suspect]
     Indication: BACK DISORDER
     Route: 065
  8. GENERIC FENTANYL [Suspect]
     Indication: INTERVERTEBRAL DISC DEGENERATION
     Route: 065
  9. GENERIC FENTANYL [Suspect]
     Indication: RHEUMATOID ARTHRITIS
     Route: 065
  10. GENERIC FENTANYL [Suspect]
     Indication: OSTEOPOROSIS
     Route: 065
  11. UNKNOWN MEDICATION [Concomitant]
     Indication: RHEUMATOID ARTHRITIS
     Route: 048

REACTIONS (7)
  - Insomnia [Not Recovered/Not Resolved]
  - Injury [Not Recovered/Not Resolved]
  - Therapeutic response decreased [Not Recovered/Not Resolved]
  - Therapeutic response unexpected with drug substitution [Not Recovered/Not Resolved]
  - Product adhesion issue [Unknown]
  - Product quality issue [Unknown]
  - Wrong technique in drug usage process [Unknown]
